FAERS Safety Report 8487359 (Version 2)
Quarter: 2013Q1

REPORT INFORMATION
  Report Type: Spontaneous
  Country: US (occurrence: US)
  Receive Date: 20120402
  Receipt Date: 20130131
  Transmission Date: 20140127
  Serious: Yes (Other)
  Sender: FDA-Public Use
  Company Number: US-ASTRAZENECA-2011SE27141

PATIENT
  Age: 75 Year
  Sex: Female

DRUGS (2)
  1. NEXIUM [Suspect]
     Indication: ULCER HAEMORRHAGE
     Route: 048
  2. NEXIUM [Suspect]
     Indication: ULCER HAEMORRHAGE
     Route: 048

REACTIONS (8)
  - Ulcer haemorrhage [Unknown]
  - Red blood cell count abnormal [Unknown]
  - Lower limb fracture [Unknown]
  - Dysphagia [Unknown]
  - Ulcer [Unknown]
  - Vomiting [Unknown]
  - Intercepted drug prescribing error [Unknown]
  - Drug dose omission [Unknown]
